FAERS Safety Report 9927912 (Version 1)
Quarter: 2014Q1

REPORT INFORMATION
  Report Type: Spontaneous
  Country: US (occurrence: US)
  Receive Date: 20140227
  Receipt Date: 20140227
  Transmission Date: 20141002
  Serious: No
  Sender: FDA-Public Use
  Company Number: US-PFIZER INC-2014055065

PATIENT
  Age: 71 Year
  Sex: Female
  Weight: 74 kg

DRUGS (2)
  1. TIKOSYN [Suspect]
     Indication: ATRIAL FIBRILLATION
     Dosage: 500 UG, 2X/DAY
     Dates: start: 201401
  2. XARELTO [Concomitant]
     Indication: ANTICOAGULANT THERAPY
     Dosage: UNK

REACTIONS (3)
  - Dizziness [Unknown]
  - Insomnia [Unknown]
  - Fatigue [Unknown]
